FAERS Safety Report 16187587 (Version 1)
Quarter: 2019Q2

REPORT INFORMATION
  Report Type: Spontaneous
  Country: NO (occurrence: NO)
  Receive Date: 20190412
  Receipt Date: 20190412
  Transmission Date: 20190711
  Serious: Yes (Other)
  Sender: FDA-Public Use
  Company Number: NO-TEVA-2019-NO-1035057

PATIENT
  Age: 65 Year
  Sex: Female

DRUGS (17)
  1. SPIRIVA RESPIMAT [Concomitant]
     Active Substance: TIOTROPIUM BROMIDE
     Dosage: 5 MICROGRAM DAILY;
     Route: 055
  2. VENTOLINE [Concomitant]
     Active Substance: ALBUTEROL
     Dosage: 0.2 MG WHEN NEEDED
     Route: 055
  3. SOMAC [Concomitant]
     Active Substance: PANTOPRAZOLE SODIUM
     Dosage: 40 MILLIGRAM DAILY;
     Route: 048
  4. SERETIDE [Concomitant]
     Active Substance: FLUTICASONE PROPIONATE\SALMETEROL XINAFOATE
     Dosage: 1-2 DOSAGE FORMS 2 TIMES A DAY
     Route: 055
  5. DEXAMETASON ABCUR [Concomitant]
     Dosage: 4 MG 1 TIME A DAY UNTIL 11.MARCH 2019, THEN 2 MG 1 TIME A DAY UNTIL 18.MARCH 2019.
     Route: 048
  6. OXYNORM [Concomitant]
     Active Substance: OXYCODONE HYDROCHLORIDE
     Dosage: 20 MG WHEN NEEDED, MAXIMUM 4-6 TABLETS A DAY
     Route: 048
  7. VIVAL [Suspect]
     Active Substance: DIAZEPAM
     Indication: ANXIETY
     Dosage: 5 MG -1 TABLET MAXIMUM 2 TIMES A DAY WHEN NEEDED (THE PATIENT HAS TAKEN OVER BECAUSE SHE THOUGHT IT
     Route: 048
     Dates: start: 20190306
  8. ALBYL-E [Concomitant]
     Active Substance: ASPIRIN\MAGNESIUM OXIDE
     Dosage: 75 MILLIGRAM DAILY;
     Route: 048
  9. CETIRIZIN [Concomitant]
     Active Substance: CETIRIZINE HYDROCHLORIDE
     Dosage: 10 MGWHEN NEEDED
     Route: 048
  10. MUCOMYST [Concomitant]
     Active Substance: ACETYLCYSTEINE
     Dosage: 200MG; 1 TABLET UNTIL THREE TIMES A DAY, WHEN NEEDED
     Route: 048
  11. OXYCONTIN [Concomitant]
     Active Substance: OXYCODONE HYDROCHLORIDE
     Dosage: 50 MG
     Route: 048
  12. LAXOBERAL [Concomitant]
     Active Substance: SODIUM PICOSULFATE
     Dosage: WHEN NEEDED
     Route: 048
  13. ZOFRAN [Concomitant]
     Active Substance: ONDANSETRON HYDROCHLORIDE
     Dosage: 16 MG 1 A DAY WHEN NEEDED
     Route: 054
  14. XALATAN [Concomitant]
     Active Substance: LATANOPROST
     Dosage: 1 DROP IN EACH EYE 1 TIME A DAY
     Route: 047
  15. AFIPRAN [Concomitant]
     Active Substance: METOCLOPRAMIDE HYDROCHLORIDE
     Dosage: 10 MG 1 TABLET MAXIMUM 3 TIMES A DAY, WHEN NEEDED
     Route: 048
  16. MOVICOL [Concomitant]
     Active Substance: POLYETHYLENE GLYCOL 3350\POTASSIUM CHLORIDE\SODIUM BICARBONATE\SODIUM CHLORIDE
     Dosage: 1 DOSAGE FORM 3 TIMES A DAY
     Route: 048
  17. BETNOVAT MED CHINOFORM [Concomitant]
     Dosage: APPLY FINGER TIPS AS INSTRUCTED BY THE DOCTOR
     Route: 003

REACTIONS (1)
  - Apathy [Recovering/Resolving]

NARRATIVE: CASE EVENT DATE: 20190311
